FAERS Safety Report 6371019-9 (Version None)
Quarter: 2009Q3

REPORT INFORMATION
  Report Type: 
  Country: None (occurrence: None)
  Receive Date: 20090923
  Receipt Date: 20090909
  Transmission Date: 20100115
  Serious: Yes (Other)
  Sender: FDA-Public Use
  Company Number: US-PFIZER INC-2009267402

PATIENT

DRUGS (1)
  1. NEURONTIN [Suspect]

REACTIONS (2)
  - DYSPHAGIA [None]
  - TONSILLECTOMY [None]
